FAERS Safety Report 21974634 (Version 1)
Quarter: 2023Q1

REPORT INFORMATION
  Report Type: Spontaneous
  Country: US (occurrence: None)
  Receive Date: 20230208
  Receipt Date: 20230208
  Transmission Date: 20230418
  Serious: Yes (Hospitalization, Other)
  Sender: FDA-Public Use
  Company Number: None

PATIENT
  Age: 56 Year
  Sex: Female
  Weight: 54.45 kg

DRUGS (4)
  1. FASLODEX [Suspect]
     Active Substance: FULVESTRANT
     Indication: Breast cancer metastatic
     Dosage: OTHER QUANTITY : 2 INJECTION(S);?OTHER FREQUENCY : 1X EVERY 28 DAYS;?
     Route: 030
     Dates: start: 20220209, end: 20230207
  2. VIMPAT [Concomitant]
     Active Substance: LACOSAMIDE
  3. ZOFRAN [Concomitant]
     Active Substance: ONDANSETRON HYDROCHLORIDE
  4. albuterol inh + solution [Concomitant]

REACTIONS (7)
  - Bronchospasm [None]
  - Dyspnoea [None]
  - Constipation [None]
  - Nausea [None]
  - Decreased appetite [None]
  - Neuropathy peripheral [None]
  - Injection related reaction [None]

NARRATIVE: CASE EVENT DATE: 20230207
